FAERS Safety Report 16971027 (Version 1)
Quarter: 2019Q4

REPORT INFORMATION
  Report Type: Spontaneous
  Country: SK (occurrence: SK)
  Receive Date: 20191029
  Receipt Date: 20191029
  Transmission Date: 20200122
  Serious: Yes (Hospitalization)
  Sender: FDA-Public Use
  Company Number: SK-JNJFOC-20191029813

PATIENT
  Age: 71 Year
  Sex: Female
  Weight: 116 kg

DRUGS (4)
  1. XEPLION [Suspect]
     Active Substance: PALIPERIDONE PALMITATE
     Indication: SCHIZOPHRENIA
     Route: 030
  2. RISPERDAL [Concomitant]
     Active Substance: RISPERIDONE
     Route: 065
  3. DEPAKINE CHRONO [Concomitant]
     Active Substance: VALPROATE SODIUM
     Dosage: LONG-TERM, 1-0-1
     Route: 048
  4. SEROQUEL [Concomitant]
     Active Substance: QUETIAPINE FUMARATE
     Route: 065

REACTIONS (3)
  - Altered state of consciousness [Recovered/Resolved]
  - Rhabdomyolysis [Recovered/Resolved]
  - Extrapyramidal disorder [Recovered/Resolved]

NARRATIVE: CASE EVENT DATE: 20190915
